FAERS Safety Report 7239110-2 (Version None)
Quarter: 2011Q1

REPORT INFORMATION
  Report Type: 
  Country: None (occurrence: None)
  Receive Date: 20110121
  Receipt Date: 20101013
  Transmission Date: 20110831
  Serious: No
  Sender: FDA-Public Use
  Company Number: US-BAYER-201022690BCC

PATIENT
  Sex: Male
  Weight: 81.818 kg

DRUGS (10)
  1. ATENOLOL [Concomitant]
  2. PLAVIX [Concomitant]
  3. OMEPRAZOLE [Concomitant]
  4. KLOR-CON [Concomitant]
  5. ASPIRIN [Concomitant]
     Dosage: UNK
  6. FUROSEMIDE [Concomitant]
  7. TYLENOL PM [Concomitant]
  8. ALEVE [Suspect]
     Indication: PRODUCT USED FOR UNKNOWN INDICATION
     Dosage: 440 MG, BID
     Route: 048
     Dates: start: 20100401, end: 20100401
  9. PRAVASTATIN [Concomitant]
  10. RAMIPRIL [Concomitant]

REACTIONS (2)
  - MALAISE [None]
  - DIZZINESS [None]
